FAERS Safety Report 9893985 (Version 1)
Quarter: 2014Q1

REPORT INFORMATION
  Report Type: Spontaneous
  Country: US (occurrence: US)
  Receive Date: 20140213
  Receipt Date: 20140213
  Transmission Date: 20141002
  Serious: No
  Sender: FDA-Public Use
  Company Number: US-PFIZER INC-2014040076

PATIENT
  Age: 52 Year
  Sex: Female
  Weight: 99.77 kg

DRUGS (3)
  1. NEURONTIN [Suspect]
     Indication: FIBROMYALGIA
     Dosage: 600 MG, 3X/DAY
     Dates: start: 20140121
  2. TOPAMAX [Concomitant]
     Dosage: 100 MG, 2X/DAY
  3. PERCOCET [Concomitant]
     Dosage: 5.32 MG, 3X/DAY

REACTIONS (5)
  - Drug ineffective for unapproved indication [Unknown]
  - Pruritus [Not Recovered/Not Resolved]
  - Malaise [Not Recovered/Not Resolved]
  - Pain [Not Recovered/Not Resolved]
  - Pain of skin [Not Recovered/Not Resolved]
